FAERS Safety Report 8242756-6 (Version None)
Quarter: 2012Q1

REPORT INFORMATION
  Report Type: 
  Country: None (occurrence: None)
  Receive Date: 20120329
  Receipt Date: 20120320
  Transmission Date: 20120608
  Serious: Yes (Other)
  Sender: FDA-Public Use
  Company Number: BR-BRISTOL-MYERS SQUIBB COMPANY-16470940

PATIENT
  Age: 72 Year
  Sex: Female
  Weight: 64 kg

DRUGS (2)
  1. LIPITOR [Concomitant]
     Indication: HYPERCHOLESTEROLAEMIA
  2. IRBESARTAN + HYDROCHLOROTHIAZIDE [Suspect]
     Indication: HYPERTENSION
     Dosage: 1DF:APROZIDE 150MG,12.5 MG TAB,STARTED SINCE ABOUT 10 YEARS AGO
     Route: 048

REACTIONS (1)
  - CATARACT [None]
